FAERS Safety Report 7192450-8 (Version None)
Quarter: 2010Q4

REPORT INFORMATION
  Report Type: 
  Country: None (occurrence: None)
  Receive Date: 20101223
  Receipt Date: 20101220
  Transmission Date: 20110411
  Serious: Yes (Death, Hospitalization)
  Sender: FDA-Public Use
  Company Number: IT-GENZYME-FLUD-1000309

PATIENT
  Sex: Male
  Weight: 50 kg

DRUGS (12)
  1. FLUDARA [Suspect]
     Indication: MANTLE CELL LYMPHOMA
     Dosage: 60 MG, QDX5, EVERY 28 DAYS
     Route: 065
     Dates: start: 20100323, end: 20100327
  2. FLUDARA [Suspect]
     Dosage: 60 MG, QDX5, EVERY 28 DAYS
     Route: 065
  3. FLUDARA [Suspect]
     Dosage: 60 MG, QDX5, EVERY 28 DAYS
     Route: 065
  4. FLUDARA [Suspect]
     Dosage: 60 MG, QDX5, EVERY 28 DAYS
     Route: 065
  5. FLUDARA [Suspect]
     Dosage: 60 MG, QDX5, EVERY 28 DAYS
     Route: 065
     Dates: end: 20100811
  6. FOLIC ACID [Concomitant]
     Indication: ANAEMIA
     Dosage: 5 MG, UNK
     Route: 048
     Dates: start: 20100629
  7. VITAMIN B-12 [Concomitant]
     Indication: ANAEMIA
     Dosage: 5000 IU, UNK
     Route: 048
     Dates: start: 20100629
  8. ITRACONAZOLE [Concomitant]
     Indication: FUNGAL INFECTION
     Dosage: 200 MG, BID
     Route: 048
     Dates: start: 20100323
  9. COTRIM [Concomitant]
     Indication: INFECTION PROPHYLAXIS
     Dosage: 457.1429 MG, 2 IN 1 WEEK
     Route: 048
     Dates: start: 20100323
  10. FILGRASTIM [Concomitant]
     Indication: LEUKOPENIA
     Dosage: UNK UNK, UNK
     Route: 058
     Dates: start: 20100820, end: 20100824
  11. TRANEXAMIC ACID [Concomitant]
     Indication: PLATELET COUNT DECREASED
     Dosage: 1500 MG, TID
     Route: 048
     Dates: start: 20100820
  12. RABEPRAZOLE SODIUM [Concomitant]
     Indication: PROPHYLAXIS
     Dosage: 20 MG, QD
     Route: 048
     Dates: start: 20100820

REACTIONS (2)
  - DEATH [None]
  - PANCYTOPENIA [None]
